FAERS Safety Report 4948251-1 (Version None)
Quarter: 2006Q1

REPORT INFORMATION
  Report Type: 
  Country: None (occurrence: None)
  Receive Date: 20060314
  Receipt Date: 20060302
  Transmission Date: 20060701
  Serious: Yes (Other)
  Sender: FDA-Public Use
  Company Number: HQWYE141403MAR06

PATIENT
  Age: 55 Year
  Sex: Female

DRUGS (5)
  1. PRIMAXIN [Suspect]
     Indication: NOSOCOMIAL INFECTION
     Dosage: 1 G 3X PER 1 DAY
     Route: 042
     Dates: start: 20060224, end: 20060227
  2. PRIMAXIN [Suspect]
     Indication: PNEUMONIA
     Dosage: 1 G 3X PER 1 DAY
     Route: 042
     Dates: start: 20060224, end: 20060227
  3. ENALAPRIL MALEATE [Concomitant]
  4. NIMODIPINE [Concomitant]
  5. CLONIXIN LYSINATE [Concomitant]

REACTIONS (1)
  - GRAND MAL CONVULSION [None]
